FAERS Safety Report 5285054-5 (Version None)
Quarter: 2007Q2

REPORT INFORMATION
  Report Type: 
  Country: None (occurrence: None)
  Receive Date: 20070403
  Receipt Date: 20070322
  Transmission Date: 20071010
  Serious: Yes (Hospitalization, Congenital Anomaly)
  Sender: FDA-Public Use
  Company Number: FR-SANOFI-SYNTHELABO-A02200700884

PATIENT
  Sex: Male
  Weight: 3.3 kg

DRUGS (12)
  1. CITRATE DE BETAINE [Concomitant]
     Indication: NAUSEA
     Route: 064
     Dates: start: 20050601, end: 20050815
  2. CITRATE DE BETAINE [Concomitant]
     Indication: VOMITING
     Route: 064
     Dates: start: 20050601, end: 20050815
  3. VOGALENE [Concomitant]
     Indication: NAUSEA
     Route: 064
     Dates: start: 20050601, end: 20050815
  4. VOGALENE [Concomitant]
     Indication: VOMITING
     Route: 064
     Dates: start: 20050601, end: 20050815
  5. DEROXAT [Suspect]
     Indication: DEPRESSION
     Route: 064
     Dates: start: 20050628, end: 20050815
  6. ZANTAC [Suspect]
     Indication: NAUSEA
     Route: 064
     Dates: start: 20050628, end: 20050815
  7. ZANTAC [Suspect]
     Indication: VOMITING
     Route: 064
     Dates: start: 20050628, end: 20050815
  8. ZOMIG [Suspect]
     Indication: MIGRAINE
     Route: 064
     Dates: start: 20050524, end: 20050812
  9. PERIDYS [Suspect]
     Indication: NAUSEA
     Dosage: 60 MG
     Route: 064
     Dates: start: 20050628, end: 20050818
  10. PERIDYS [Suspect]
     Indication: VOMITING
     Dosage: 60 MG
     Route: 064
     Dates: start: 20050628, end: 20050818
  11. ASPEGIC 1000 [Suspect]
     Indication: MIGRAINE
     Dosage: 2- 3 GR PER WEEK
     Route: 064
     Dates: start: 20050501, end: 20050815
  12. STILNOX [Suspect]
     Indication: DRUG USE FOR UNKNOWN INDICATION
     Route: 064
     Dates: start: 20050501, end: 20050815

REACTIONS (2)
  - DRUG EXPOSURE DURING PREGNANCY [None]
  - HYPOSPADIAS [None]
